FAERS Safety Report 9325538 (Version 1)
Quarter: 2013Q2

REPORT INFORMATION
  Report Type: Report from Study
  Country: US (occurrence: US)
  Receive Date: 20130604
  Receipt Date: 20130604
  Transmission Date: 20140414
  Serious: Yes (Hospitalization)
  Sender: FDA-Public Use
  Company Number: PHEH2013US011753

PATIENT
  Sex: Male

DRUGS (7)
  1. TASIGNA [Suspect]
     Dosage: 150 MG, QD
     Route: 048
  2. ASPIRIN [Concomitant]
  3. COREG [Concomitant]
  4. EFFIENT [Concomitant]
  5. LIPITOR [Concomitant]
  6. LISINOPRIL [Concomitant]
  7. RANEXA [Concomitant]

REACTIONS (1)
  - Pulmonary haemorrhage [Unknown]
